FAERS Safety Report 24214865 (Version 2)
Quarter: 2024Q3

REPORT INFORMATION
  Report Type: Report from Study
  Country: DK (occurrence: DK)
  Receive Date: 20240815
  Receipt Date: 20240904
  Transmission Date: 20241017
  Serious: Yes (Death)
  Sender: TEVA
  Company Number: DK-TEVA-VS-3231949

PATIENT

DRUGS (5)
  1. TRAMADOL [Suspect]
     Active Substance: TRAMADOL\TRAMADOL HYDROCHLORIDE
     Indication: Drug abuse
     Route: 065
  2. METHADONE [Suspect]
     Active Substance: METHADONE HYDROCHLORIDE
     Indication: Drug abuse
     Route: 065
  3. CODEINE [Suspect]
     Active Substance: CODEINE
     Indication: Drug abuse
     Route: 065
  4. MORPHINE [Suspect]
     Active Substance: MORPHINE
     Indication: Drug abuse
     Route: 065
  5. KETOBEMIDONE [Suspect]
     Active Substance: KETOBEMIDONE
     Indication: Drug abuse
     Route: 065

REACTIONS (2)
  - Toxicity to various agents [Fatal]
  - Drug abuse [Fatal]
